FAERS Safety Report 16787974 (Version 1)
Quarter: 2019Q3

REPORT INFORMATION
  Report Type: Spontaneous
  Country: US (occurrence: US)
  Receive Date: 20190909
  Receipt Date: 20190909
  Transmission Date: 20191005
  Serious: No
  Sender: FDA-Public Use
  Company Number: US-009507513-1909USA002895

PATIENT

DRUGS (2)
  1. STERILE DILUENT (WATER) [Suspect]
     Active Substance: WATER
     Dosage: 0.5 MILLILITER
     Route: 030
     Dates: start: 20190830, end: 20190830
  2. ROTARIX [Suspect]
     Active Substance: HUMAN ROTAVIRUS A TYPE G1P(8) STRAIN RIX4414 LIVE ANTIGEN

REACTIONS (4)
  - Product administration error [Unknown]
  - No adverse event [Unknown]
  - Medication error [Unknown]
  - Product preparation error [Unknown]

NARRATIVE: CASE EVENT DATE: 20190830
